FAERS Safety Report 5183867-1 (Version None)
Quarter: 2006Q4

REPORT INFORMATION
  Report Type: 
  Country: None (occurrence: None)
  Receive Date: 20061220
  Receipt Date: 20061020
  Transmission Date: 20070319
  Serious: Yes (Other)
  Sender: FDA-Public Use
  Company Number: PHBS2006FI16619

PATIENT
  Age: 43 Year
  Sex: Female

DRUGS (4)
  1. ZOMETA [Suspect]
     Indication: OSTEOPOROSIS
     Route: 065
  2. ANTIASTHMATICS [Concomitant]
  3. ANTIINFLAMMATORY/ANTIRHEUMATIC PRODUCTS [Concomitant]
  4. LYRICA [Concomitant]

REACTIONS (1)
  - ANAPHYLACTIC SHOCK [None]
